FAERS Safety Report 6876539-6 (Version None)
Quarter: 2010Q3

REPORT INFORMATION
  Report Type: 
  Country: None (occurrence: None)
  Receive Date: 20100727
  Receipt Date: 20100713
  Transmission Date: 20110219
  Serious: Yes (Hospitalization)
  Sender: FDA-Public Use
  Company Number: US-ELI_LILLY_AND_COMPANY-US201006006105

PATIENT
  Sex: Male
  Weight: 68.7 kg

DRUGS (12)
  1. PEMETREXED [Suspect]
     Indication: NON-SMALL CELL LUNG CANCER
     Dosage: 500 MG/M2, OTHER
     Route: 042
     Dates: start: 20100322
  2. PEMETREXED [Suspect]
     Dosage: 375 MG/M2, OTHER
     Route: 042
     Dates: start: 20100524
  3. CARBOPLATIN [Suspect]
     Indication: NON-SMALL CELL LUNG CANCER
     Dosage: 6 D/F, OTHER
     Route: 042
     Dates: start: 20100322
  4. CARBOPLATIN [Suspect]
     Dosage: 4.5 D/F, OTHER
     Route: 042
     Dates: start: 20100524, end: 20100524
  5. BEVACIZUMAB [Suspect]
     Indication: NON-SMALL CELL LUNG CANCER
     Dosage: 15 MG/KG, OTHER
     Route: 042
     Dates: start: 20100322, end: 20100524
  6. BEVACIZUMAB [Suspect]
     Dosage: 15 MG/M2, OTHER
     Route: 042
     Dates: start: 20100615
  7. FOLIC ACID [Concomitant]
     Indication: SUPPLEMENTATION THERAPY
     Dosage: UNK, UNK
     Dates: start: 20100315
  8. PERCOCET [Concomitant]
     Indication: PAIN
     Dosage: UNK, AS NEEDED
  9. PHENERGAN [Concomitant]
     Indication: COUGH
  10. RED BLOOD CELLS [Concomitant]
     Indication: ANAEMIA
     Dosage: 2 U, UNK
     Dates: start: 20100614
  11. VITAMIN B-12 [Concomitant]
     Indication: PREMEDICATION
     Dosage: UNK, OTHER
     Route: 030
     Dates: start: 20100209
  12. DEXAMETHASONE [Concomitant]
     Indication: PREMEDICATION
     Dates: start: 20100223

REACTIONS (1)
  - HAEMOPTYSIS [None]
